FAERS Safety Report 8792795 (Version 1)
Quarter: 2012Q4

REPORT INFORMATION
  Report Type: 
  Country: JP (occurrence: JP)
  Receive Date: 20120918
  Receipt Date: 20120918
  Transmission Date: 20130627
  Serious: Yes (Hospitalization)
  Sender: FDA-Public Use
  Company Number: JP-GLAXOSMITHKLINE-B0830565A

PATIENT
  Age: 29 Year
  Sex: Female

DRUGS (3)
  1. FLUTIDE [Suspect]
     Route: 055
  2. SODIUM SULBACTAM + SODIUM AMPICILLIN [Suspect]
  3. RITODRINE HYDROCHLORIDE [Suspect]
     Route: 065

REACTIONS (7)
  - Polyhydramnios [Unknown]
  - Exposure during pregnancy [Unknown]
  - Threatened labour [Unknown]
  - Abdominal distension [Unknown]
  - Nausea [Unknown]
  - Uterine contractions abnormal [Unknown]
  - Labour pain [Unknown]
